FAERS Safety Report 4311405-1 (Version None)
Quarter: 2004Q1

REPORT INFORMATION
  Report Type: 
  Country: None (occurrence: None)
  Receive Date: 20040303
  Receipt Date: 20030311
  Transmission Date: 20041129
  Serious: Yes (Other)
  Sender: FDA-Public Use
  Company Number: 200314119BWH

PATIENT
  Age: 31 Year
  Sex: Female

DRUGS (4)
  1. NIMOTOP [Suspect]
     Indication: SUBARACHNOID HAEMORRHAGE
     Dosage: 30 MG, ONCE
     Route: 042
     Dates: start: 20030310
  2. DILANTIN [Concomitant]
  3. METHYLPREDNISOLONE [Concomitant]
  4. VASOPRESSIN [Concomitant]

REACTIONS (2)
  - BLOOD PRESSURE DECREASED [None]
  - BRADYCARDIA [None]
